FAERS Safety Report 7521471-8 (Version None)
Quarter: 2011Q2

REPORT INFORMATION
  Report Type: 
  Country: None (occurrence: None)
  Receive Date: 20110603
  Receipt Date: 20110104
  Transmission Date: 20111010
  Serious: Yes (Other)
  Sender: FDA-Public Use
  Company Number: CA-BAYER-2010-000878

PATIENT
  Age: 22 Year
  Sex: Female
  Weight: 76.644 kg

DRUGS (1)
  1. MIRENA [Suspect]
     Indication: CONTRACEPTION
     Dosage: 20 MCG/24HR, CONT
     Route: 015
     Dates: start: 20101001, end: 20101029

REACTIONS (3)
  - ABDOMINAL PAIN [None]
  - UTERINE PERFORATION [None]
  - PAIN [None]
